FAERS Safety Report 5744979-4 (Version None)
Quarter: 2008Q2

REPORT INFORMATION
  Report Type: 
  Country: None (occurrence: None)
  Receive Date: 20080521
  Receipt Date: 20080520
  Transmission Date: 20081010
  Serious: Yes (Other)
  Sender: FDA-Public Use
  Company Number: US-BAYER-US-2007-026489

PATIENT
  Age: 41 Year
  Sex: Female
  Weight: 76 kg

DRUGS (1)
  1. MIRENA [Suspect]
     Indication: CONTRACEPTION
     Route: 015
     Dates: start: 20070711

REACTIONS (8)
  - ABDOMINAL DISCOMFORT [None]
  - ABDOMINAL DISTENSION [None]
  - DIZZINESS [None]
  - EXTRASYSTOLES [None]
  - NAUSEA [None]
  - PRESYNCOPE [None]
  - PROCEDURAL PAIN [None]
  - SUPRAVENTRICULAR TACHYCARDIA [None]
